FAERS Safety Report 17658076 (Version 1)
Quarter: 2020Q2

REPORT INFORMATION
  Report Type: Spontaneous
  Country: US (occurrence: US)
  Receive Date: 20200411
  Receipt Date: 20200411
  Transmission Date: 20200713
  Serious: No
  Sender: FDA-Public Use
  Company Number: US-TEVA-2020-US-1219592

PATIENT
  Sex: Female

DRUGS (3)
  1. RUBRACA [Suspect]
     Active Substance: RUCAPARIB CAMSYLATE
     Dosage: 600 MILLIGRAM DAILY;
     Route: 048
     Dates: start: 20191203
  2. GRANIX [Suspect]
     Active Substance: TBO-FILGRASTIM
     Indication: WHITE BLOOD CELL COUNT DECREASED
     Route: 065
     Dates: start: 2020
  3. RUBRACA [Suspect]
     Active Substance: RUCAPARIB CAMSYLATE
     Indication: OVARIAN CANCER
     Dosage: 900 MILLIGRAM DAILY; DOSE: 600MG AM/300MG PM
     Route: 048
     Dates: start: 20191209, end: 202002

REACTIONS (4)
  - Lymphadenopathy [Unknown]
  - Asthenia [Unknown]
  - Bone pain [Unknown]
  - Fatigue [Unknown]
